FAERS Safety Report 6295613-9 (Version None)
Quarter: 2009Q3

REPORT INFORMATION
  Report Type: 
  Country: None (occurrence: None)
  Receive Date: 20090731
  Receipt Date: 20090723
  Transmission Date: 20100115
  Serious: Yes (Disabling)
  Sender: FDA-Public Use
  Company Number: OSCN-NO-0901S-0030

PATIENT
  Age: 53 Year
  Sex: Male

DRUGS (13)
  1. OMNISCAN [Suspect]
     Indication: DRUG USE FOR UNKNOWN INDICATION
     Dosage: 40 ML, SINGLE DOSE, I.V.
     Route: 042
     Dates: start: 20051114, end: 20051114
  2. GADOPENTETATE DIMEGLUMINE      (MAGNEVIST) [Concomitant]
  3. EPREX [Concomitant]
  4. SACCHARATED IRON OXIDE        (VENOFER) [Concomitant]
  5. SANDIMMUNE [Concomitant]
  6. PREDNISOLONE [Concomitant]
  7. ISRADIPINE (LOMIR) [Concomitant]
  8. ALLOPURINOL (APURIN) [Concomitant]
  9. FUROSEMIDE (DIURAL) [Concomitant]
  10. METOPROLOL SUCCINATE (SELO-ZOK) [Concomitant]
  11. CALCIUM ACETATE (PHOS-EX) [Concomitant]
  12. LESCOL [Concomitant]
  13. ALFACALCIDOL (ETALPHA) [Concomitant]

REACTIONS (8)
  - AORTIC VALVE INCOMPETENCE [None]
  - CARDIAC FAILURE [None]
  - COMPLICATIONS OF TRANSPLANTED KIDNEY [None]
  - DRUG HYPERSENSITIVITY [None]
  - LUNG INFILTRATION MALIGNANT [None]
  - LYMPHADENOPATHY [None]
  - NEPHROGENIC SYSTEMIC FIBROSIS [None]
  - TESTICULAR PAIN [None]
